FAERS Safety Report 4343704-1 (Version None)
Quarter: 2004Q2

REPORT INFORMATION
  Report Type: 
  Country: None (occurrence: None)
  Receive Date: 20040419
  Receipt Date: 20040412
  Transmission Date: 20050107
  Serious: Yes (Hospitalization)
  Sender: FDA-Public Use
  Company Number: US-JNJFOC-20040402642

PATIENT
  Age: 52 Year
  Sex: Female

DRUGS (8)
  1. DURAGESIC [Suspect]
     Indication: PAIN
     Dosage: 25 UG/HR, 1 IN 72 HOUR, TRANSDERMAL
     Route: 062
     Dates: start: 20031201
  2. LORTAB [Concomitant]
  3. ATARAX [Concomitant]
  4. BENZODIAZEPINE (BENZODIAZEPINE DERIVATIVES) [Concomitant]
  5. AMBIEN [Concomitant]
  6. RESTORIL [Concomitant]
  7. KLONOPIN [Concomitant]
  8. PROTONIX [Concomitant]

REACTIONS (8)
  - CONTRAST MEDIA REACTION [None]
  - HAEMATEMESIS [None]
  - HAEMORRHAGE [None]
  - INADEQUATE ANALGESIA [None]
  - MIGRAINE [None]
  - POST PROCEDURAL COMPLICATION [None]
  - SPINAL DISORDER [None]
  - VASCULAR INJURY [None]
